FAERS Safety Report 18587225 (Version 3)
Quarter: 2021Q1

REPORT INFORMATION
  Report Type: Spontaneous
  Country: US (occurrence: US)
  Receive Date: 20201207
  Receipt Date: 20210120
  Transmission Date: 20210419
  Serious: No
  Sender: FDA-Public Use
  Company Number: US-PFIZER INC-2020481307

PATIENT
  Age: 48 Year
  Sex: Female
  Weight: 71.66 kg

DRUGS (2)
  1. PRISTIQ EXTENDED?RELEASE [Suspect]
     Active Substance: DESVENLAFAXINE SUCCINATE
     Dosage: 25 MG, 1X/DAY (1 PO QD (ONCE A DAY))
     Route: 048
     Dates: start: 20201019
  2. PRISTIQ EXTENDED?RELEASE [Suspect]
     Active Substance: DESVENLAFAXINE SUCCINATE
     Dosage: 75 MG, 1X/DAY (QD (ONCE A DAY)

REACTIONS (2)
  - Product prescribing error [Unknown]
  - Movement disorder [Unknown]
